FAERS Safety Report 12376924 (Version 2)
Quarter: 2016Q2

REPORT INFORMATION
  Report Type: Spontaneous
  Country: JP (occurrence: JP)
  Receive Date: 20160517
  Receipt Date: 20160615
  Transmission Date: 20160815
  Serious: Yes (Disabling, Other)
  Sender: FDA-Public Use
  Company Number: JP-GILEAD-2016-0213378

PATIENT
  Sex: Male

DRUGS (6)
  1. BENIDIPINE [Concomitant]
     Active Substance: BENIDIPINE
  2. RIBAVIRIN. [Suspect]
     Active Substance: RIBAVIRIN
     Indication: CHRONIC HEPATITIS C
     Dosage: UNK
     Route: 048
     Dates: start: 20160502, end: 20160510
  3. RIBAVIRIN. [Suspect]
     Active Substance: RIBAVIRIN
     Dosage: 200 MG, UNK
     Route: 048
     Dates: start: 20160519
  4. SOVALDI [Suspect]
     Active Substance: SOFOSBUVIR
     Indication: CHRONIC HEPATITIS C
     Dosage: 400 MG, UNK
     Route: 048
     Dates: start: 20160502, end: 20160510
  5. SOVALDI [Suspect]
     Active Substance: SOFOSBUVIR
     Dosage: 400 UNK, UNK
     Route: 048
     Dates: start: 20160519
  6. MICARDIS [Concomitant]
     Active Substance: TELMISARTAN
     Indication: HYPERTENSION

REACTIONS (3)
  - Haemoglobin decreased [Unknown]
  - Jaundice [Not Recovered/Not Resolved]
  - Blood bilirubin increased [Not Recovered/Not Resolved]

NARRATIVE: CASE EVENT DATE: 20160510
